FAERS Safety Report 9333122 (Version 1)
Quarter: 2013Q2

REPORT INFORMATION
  Report Type: Spontaneous
  Country: US (occurrence: None)
  Receive Date: 20130604
  Receipt Date: 20130604
  Transmission Date: 20140414
  Serious: Yes (Death)
  Sender: FDA-Public Use
  Company Number: 20130281

PATIENT
  Sex: 0

DRUGS (2)
  1. PHENYTOIN SODIUM [Suspect]
     Indication: PRODUCT USED FOR UNKNOWN INDICATION
  2. DEXAMETHASONE SODIUM PHOSPHATE INJECTION, USP (4901-25) 4 MG/ML [Suspect]
     Indication: PRODUCT USED FOR UNKNOWN INDICATION

REACTIONS (1)
  - Thrombocytopenia [None]
